FAERS Safety Report 7102006-0 (Version None)
Quarter: 2010Q4

REPORT INFORMATION
  Report Type: 
  Country: None (occurrence: None)
  Receive Date: 20101115
  Receipt Date: 20101104
  Transmission Date: 20110411
  Serious: Yes (Hospitalization)
  Sender: FDA-Public Use
  Company Number: JP-ROCHE-694946

PATIENT
  Sex: Female
  Weight: 61 kg

DRUGS (44)
  1. TOCILIZUMAB [Suspect]
     Indication: RHEUMATOID ARTHRITIS
     Route: 041
     Dates: start: 20080618, end: 20080618
  2. TOCILIZUMAB [Suspect]
     Route: 041
     Dates: start: 20080716, end: 20080716
  3. TOCILIZUMAB [Suspect]
     Route: 041
     Dates: start: 20080813, end: 20080813
  4. TOCILIZUMAB [Suspect]
     Route: 041
     Dates: start: 20080910, end: 20080910
  5. TOCILIZUMAB [Suspect]
     Route: 041
     Dates: start: 20081119, end: 20081119
  6. TOCILIZUMAB [Suspect]
     Route: 041
     Dates: start: 20081217, end: 20081217
  7. TOCILIZUMAB [Suspect]
     Route: 041
     Dates: start: 20090114, end: 20090114
  8. TOCILIZUMAB [Suspect]
     Route: 041
     Dates: start: 20090218, end: 20090218
  9. TOCILIZUMAB [Suspect]
     Route: 041
     Dates: start: 20090318, end: 20090318
  10. TOCILIZUMAB [Suspect]
     Route: 041
     Dates: start: 20090415, end: 20090415
  11. TOCILIZUMAB [Suspect]
     Route: 041
     Dates: start: 20090520, end: 20090520
  12. TOCILIZUMAB [Suspect]
     Route: 041
     Dates: start: 20090617, end: 20100301
  13. RHEUMATREX [Concomitant]
     Route: 048
     Dates: end: 20081013
  14. RHEUMATREX [Concomitant]
     Route: 048
     Dates: start: 20081024, end: 20081216
  15. RHEUMATREX [Concomitant]
     Route: 048
     Dates: start: 20081217
  16. RHEUMATREX [Concomitant]
     Route: 048
     Dates: start: 20100412
  17. PREDNISOLONE [Concomitant]
     Dosage: FORM: PERORAL AGENT
     Route: 048
  18. PREDNISOLONE [Concomitant]
     Route: 048
     Dates: end: 20100408
  19. PREDNISOLONE [Concomitant]
     Route: 048
     Dates: start: 20100409, end: 20100601
  20. PREDNISOLONE [Concomitant]
     Route: 048
     Dates: start: 20100604, end: 20100101
  21. PREDNISOLONE [Concomitant]
     Route: 048
     Dates: start: 20100101
  22. CONIEL [Concomitant]
     Route: 048
  23. BLOPRESS [Concomitant]
     Route: 048
  24. MOBIC [Concomitant]
     Route: 048
  25. FOLIAMIN [Concomitant]
     Route: 048
     Dates: end: 20100412
  26. ONEALFA [Concomitant]
     Dosage: FORM: PERORAL AGENT
     Route: 048
  27. LIPITOR [Concomitant]
     Route: 048
     Dates: end: 20100503
  28. TAKEPRON [Concomitant]
     Route: 048
     Dates: end: 20100721
  29. BONALON [Concomitant]
     Route: 048
     Dates: end: 20100510
  30. MAGLAX [Concomitant]
     Dosage: FORM: PERORAL AGENT
     Route: 048
  31. VOLTAREN [Concomitant]
     Route: 061
     Dates: start: 20080618, end: 20081107
  32. KETOPROFEN [Concomitant]
     Dosage: FORM: TAPE
     Route: 061
     Dates: start: 20080618, end: 20081029
  33. LAMISIL [Concomitant]
     Route: 003
  34. MUCOSTA [Concomitant]
     Route: 048
     Dates: end: 20100712
  35. CYANOCOBALAMIN [Concomitant]
     Route: 048
     Dates: start: 20080910, end: 20081216
  36. FERO-GRADUMET [Concomitant]
     Route: 048
     Dates: start: 20080924, end: 20081014
  37. CINAL [Concomitant]
     Dosage: FORM: PERORAL AGENT
     Route: 048
     Dates: start: 20080924, end: 20081014
  38. LOXONIN [Concomitant]
     Dosage: FORM: TAPE, DOSAGE ADJUSTED
     Route: 061
     Dates: start: 20081030, end: 20081216
  39. LORCAM [Concomitant]
     Dosage: TAKEN AS NEEDED 4 MG A DAY
     Route: 048
     Dates: start: 20081017, end: 20081216
  40. LENDORMIN [Concomitant]
     Route: 048
     Dates: start: 20081103, end: 20081216
  41. PL [Concomitant]
     Route: 048
     Dates: start: 20081225, end: 20081230
  42. RHEUMATREX [Concomitant]
     Route: 048
     Dates: end: 20091013
  43. RHEUMATREX [Concomitant]
     Route: 048
     Dates: start: 20081024, end: 20081216
  44. RHEUMATREX [Concomitant]
     Route: 048
     Dates: start: 20081217

REACTIONS (5)
  - CELLULITIS [None]
  - CYTOMEGALOVIRUS INFECTION [None]
  - GLOMERULONEPHRITIS [None]
  - GLOMERULONEPHRITIS ACUTE [None]
  - RENAL DISORDER [None]
